FAERS Safety Report 15844959 (Version 1)
Quarter: 2019Q1

REPORT INFORMATION
  Report Type: Report from Study
  Country: None (occurrence: NO)
  Receive Date: 20190119
  Receipt Date: 20190119
  Transmission Date: 20190417
  Serious: Yes (Hospitalization, Other)
  Sender: FDA-Public Use
  Company Number: NO-ABBVIE-19S-122-2625704-00

PATIENT
  Sex: Male

DRUGS (2)
  1. DUODOPA [Suspect]
     Active Substance: CARBIDOPA\LEVODOPA
     Dosage: CONTINOUS DOSE: 0.7
     Route: 050
  2. DUODOPA [Suspect]
     Active Substance: CARBIDOPA\LEVODOPA
     Indication: PRODUCT USED FOR UNKNOWN INDICATION
     Dosage: CONTINOUS DOSE: 1.5
     Route: 050

REACTIONS (12)
  - Hallucination [Unknown]
  - Pallor [Unknown]
  - Stoma site discharge [Unknown]
  - Tremor [Unknown]
  - Unresponsive to stimuli [Unknown]
  - Pneumonia [Unknown]
  - Confusional state [Unknown]
  - Decreased eye contact [Unknown]
  - Hyperhidrosis [Unknown]
  - Malaise [Unknown]
  - Stoma site reaction [Unknown]
  - Stoma site odour [Unknown]
